FAERS Safety Report 18379357 (Version 3)
Quarter: 2020Q4

REPORT INFORMATION
  Report Type: Spontaneous
  Country: AE (occurrence: AE)
  Receive Date: 20201013
  Receipt Date: 20201230
  Transmission Date: 20210114
  Serious: Yes (Hospitalization)
  Sender: FDA-Public Use
  Company Number: AE-NOVOPROD-757686

PATIENT
  Age: 26 Year
  Sex: Female
  Weight: 70.5 kg

DRUGS (3)
  1. NOVORAPID [Suspect]
     Active Substance: INSULIN ASPART
     Dosage: UNK (NEW ONE)
     Route: 058
  2. LEVEMIR [Concomitant]
     Active Substance: INSULIN DETEMIR
     Indication: DIABETES MELLITUS
     Dosage: 20 IU, QD (BED TIME)
     Route: 058
     Dates: start: 20200714
  3. NOVORAPID [Suspect]
     Active Substance: INSULIN ASPART
     Indication: DIABETES MELLITUS
     Dosage: 20 IU, QD (6/8/6 UNITS BEFORE MEALS  THREE TIMES)
     Route: 058
     Dates: start: 20200714

REACTIONS (4)
  - Diabetic ketoacidosis [Unknown]
  - Incorrect dose administered by device [Unknown]
  - Device breakage [Unknown]
  - Wrong technique in product usage process [Unknown]

NARRATIVE: CASE EVENT DATE: 20200715
